FAERS Safety Report 5378983-5 (Version None)
Quarter: 2007Q3

REPORT INFORMATION
  Report Type: 
  Country: None (occurrence: None)
  Receive Date: 20070705
  Receipt Date: 20070625
  Transmission Date: 20080115
  Serious: Yes (Life-Threatening)
  Sender: FDA-Public Use
  Company Number: CH-AMGEN-US232257

PATIENT
  Age: 59 Year
  Sex: Female

DRUGS (5)
  1. ENBREL [Suspect]
     Indication: RHEUMATOID ARTHRITIS
     Route: 058
     Dates: start: 20010620
  2. HERBAL PREPARATION [Concomitant]
     Route: 048
  3. CALCIMAGON [Concomitant]
  4. METHOTREXATE [Concomitant]
     Indication: RHEUMATOID ARTHRITIS
     Route: 030
  5. FOLIC ACID [Concomitant]

REACTIONS (2)
  - DRUG HYPERSENSITIVITY [None]
  - VERTIGO [None]
